FAERS Safety Report 15317079 (Version 1)
Quarter: 2018Q3

REPORT INFORMATION
  Report Type: Report from Study
  Country: US (occurrence: US)
  Receive Date: 20180824
  Receipt Date: 20180824
  Transmission Date: 20181010
  Serious: Yes (Other)
  Sender: FDA-Public Use
  Company Number: US-JNJFOC-20180832578

PATIENT
  Age: 77 Year
  Sex: Male

DRUGS (12)
  1. CALCIUM + VIT D [Concomitant]
     Active Substance: CALCIUM\VITAMIN D
  2. ASCORBIC ACID. [Concomitant]
     Active Substance: ASCORBIC ACID
  3. MULTIVITAMINS [Concomitant]
     Active Substance: VITAMINS
  4. NEURONTIN [Concomitant]
     Active Substance: GABAPENTIN
  5. ALLOPURINOL. [Concomitant]
     Active Substance: ALLOPURINOL
  6. ALBUTEROL. [Concomitant]
     Active Substance: ALBUTEROL
  7. PREDNISONE. [Concomitant]
     Active Substance: PREDNISONE
  8. IMBRUVICA [Suspect]
     Active Substance: IBRUTINIB
     Indication: CHRONIC LYMPHOCYTIC LEUKAEMIA
     Route: 048
     Dates: start: 20180502, end: 2018
  9. GARLIC. [Concomitant]
     Active Substance: GARLIC
  10. TURMERIC [Concomitant]
     Active Substance: HERBALS\TURMERIC
  11. LECITHIN [Concomitant]
     Active Substance: LECITHIN
  12. SELENIUM [Concomitant]
     Active Substance: SELENIUM

REACTIONS (3)
  - Incorrect dose administered [Unknown]
  - Off label use [Unknown]
  - Eye haemorrhage [Unknown]

NARRATIVE: CASE EVENT DATE: 20180502
